FAERS Safety Report 21562463 (Version 1)
Quarter: 2022Q4

REPORT INFORMATION
  Report Type: Spontaneous
  Country: MX (occurrence: MX)
  Receive Date: 20221107
  Receipt Date: 20221107
  Transmission Date: 20230112
  Serious: Yes (Other)
  Sender: FDA-Public Use
  Company Number: MX-BAUSCH-BL-2022-024780

PATIENT
  Age: 61 Year
  Sex: Male

DRUGS (3)
  1. RIFAXIMIN [Suspect]
     Active Substance: RIFAXIMIN
     Indication: Dyspepsia
     Dosage: 1 TABLET EVERY 8HRS AFTER EACH MEAL
     Route: 048
     Dates: start: 20221001, end: 20221002
  2. RIFAXIMIN [Suspect]
     Active Substance: RIFAXIMIN
     Indication: Flatulence
  3. RIFAXIMIN [Suspect]
     Active Substance: RIFAXIMIN
     Indication: Abdominal distension

REACTIONS (2)
  - Pain [Recovered/Resolved]
  - Intentional product use issue [Unknown]

NARRATIVE: CASE EVENT DATE: 20221001
